FAERS Safety Report 15331634 (Version 1)
Quarter: 2018Q3

REPORT INFORMATION
  Report Type: Spontaneous
  Country: US (occurrence: US)
  Receive Date: 20180829
  Receipt Date: 20180829
  Transmission Date: 20181010
  Serious: Yes (Other)
  Sender: FDA-Public Use
  Company Number: US-TEVA-2018-US-947578

PATIENT
  Age: 43 Year
  Sex: Female

DRUGS (1)
  1. OXYCODONE HYDROCHLORIDE. [Suspect]
     Active Substance: OXYCODONE HYDROCHLORIDE
     Indication: BACK PAIN
     Route: 065
     Dates: start: 2008, end: 2013

REACTIONS (3)
  - Drug dependence [Unknown]
  - Drug dependence [Unknown]
  - Drug diversion [Unknown]

NARRATIVE: CASE EVENT DATE: 2011
